FAERS Safety Report 7604025-4 (Version None)
Quarter: 2011Q3

REPORT INFORMATION
  Report Type: 
  Country: None (occurrence: None)
  Receive Date: 20110712
  Receipt Date: 20110701
  Transmission Date: 20111222
  Serious: Yes (Other)
  Sender: FDA-Public Use
  Company Number: KR-JNJFOC-20110700712

PATIENT
  Age: 74 Year
  Sex: Male

DRUGS (6)
  1. DUPHALAC [Concomitant]
     Route: 048
  2. HYDROMORPHONE HCL [Concomitant]
  3. TYLENOL (CAPLET) [Suspect]
     Indication: PRODUCT USED FOR UNKNOWN INDICATION
     Route: 048
     Dates: start: 20110601
  4. TYLENOL (CAPLET) [Suspect]
     Route: 048
  5. URSODIOL [Concomitant]
  6. VITAMIN TAB [Concomitant]

REACTIONS (1)
  - COMA HEPATIC [None]
